FAERS Safety Report 5357858-1 (Version None)
Quarter: 2007Q2

REPORT INFORMATION
  Report Type: 
  Country: None (occurrence: None)
  Receive Date: 20070614
  Receipt Date: 20070612
  Transmission Date: 20071010
  Serious: Yes (Hospitalization)
  Sender: FDA-Public Use
  Company Number: DE-MERCK-0704DEU00083

PATIENT
  Age: 53 Year
  Sex: Female
  Weight: 64 kg

DRUGS (17)
  1. FOSAMAX PLUS D [Suspect]
     Indication: OSTEOPOROSIS
     Route: 048
     Dates: start: 20070214, end: 20070313
  2. BENSERAZIDE HYDROCHLORIDE AND LEVODOPA [Concomitant]
     Route: 048
  3. ALUMINUM HYDROXIDE [Concomitant]
     Route: 048
  4. CHOLECALCIFEROL [Concomitant]
     Route: 048
  5. OMEPRAZOLE [Concomitant]
     Route: 048
  6. ZOPICLONE [Concomitant]
     Route: 048
  7. ALFACALCIDOL [Concomitant]
     Route: 048
  8. DOMPERIDONE [Concomitant]
     Route: 048
  9. BENSERAZIDE HYDROCHLORIDE AND LEVODOPA [Concomitant]
     Route: 048
  10. ASCORBIC ACID AND VITAMIN B (UNSPECIFIED) [Concomitant]
     Route: 048
  11. SIMVASTATIN [Concomitant]
     Route: 048
  12. DICLOFENAC SODIUM [Concomitant]
     Route: 048
  13. CLOPIDOGREL BISULFATE [Concomitant]
     Route: 048
  14. LACTULOSE [Concomitant]
     Route: 048
  15. METOCLOPRAMIDE HYDROCHLORIDE [Concomitant]
     Route: 048
  16. CALCIUM ACETATE [Concomitant]
     Route: 048
  17. EPOETIN BETA [Concomitant]
     Route: 058

REACTIONS (3)
  - DIVERTICULITIS [None]
  - MALAISE [None]
  - VOMITING [None]
